FAERS Safety Report 8798643 (Version 1)
Quarter: 2012Q4

REPORT INFORMATION
  Report Type: 
  Country: US (occurrence: US)
  Receive Date: 20120920
  Receipt Date: 20120920
  Transmission Date: 20130627
  Serious: Yes (Other)
  Sender: FDA-Public Use
  Company Number: US-VERTEX PHARMACEUTICAL INC.-AE-2012-010378

PATIENT
  Age: 51 Year
  Sex: Male

DRUGS (5)
  1. INCIVEK [Suspect]
     Indication: HEPATITIS C
     Route: 048
     Dates: start: 20120608, end: 20120712
  2. PEGINTERFERON [Suspect]
     Indication: HEPATITIS C
     Dates: start: 20120608, end: 20120712
  3. RIBAVIRIN [Suspect]
     Indication: HEPATITIS C
     Dates: start: 20120608, end: 20120712
  4. ISENTRESS [Concomitant]
     Indication: HIV INFECTION
  5. TRUVADA [Concomitant]
     Indication: HIV INFECTION

REACTIONS (7)
  - CD4 lymphocytes decreased [Unknown]
  - Off label use [Unknown]
  - Palpitations [Unknown]
  - Depression [Unknown]
  - Vision blurred [Unknown]
  - Asthenia [Unknown]
  - Blood bilirubin increased [Unknown]
